FAERS Safety Report 4915920-9 (Version None)
Quarter: 2006Q1

REPORT INFORMATION
  Report Type: 
  Country: None (occurrence: None)
  Receive Date: 20060214
  Receipt Date: 20060202
  Transmission Date: 20060701
  Serious: Yes (Hospitalization)
  Sender: FDA-Public Use
  Company Number: 220001N06USA

PATIENT
  Age: 14 Year
  Sex: Male

DRUGS (2)
  1. SAIZEN [Suspect]
     Indication: BLOOD GROWTH HORMONE
     Dates: start: 20050321, end: 20050404
  2. SAIZEN [Suspect]
     Indication: BLOOD GROWTH HORMONE
     Dates: start: 20050607

REACTIONS (5)
  - CELLULITIS [None]
  - INJECTION SITE ERYTHEMA [None]
  - INJECTION SITE PAIN [None]
  - INJECTION SITE WARMTH [None]
  - INJURY [None]
